FAERS Safety Report 8476239-5 (Version None)
Quarter: 2012Q2

REPORT INFORMATION
  Report Type: 
  Country: None (occurrence: None)
  Receive Date: 20120628
  Receipt Date: 20120622
  Transmission Date: 20120825
  Serious: Yes (Hospitalization, Other)
  Sender: FDA-Public Use
  Company Number: US-ACTELION-A-US2010-35843

PATIENT

DRUGS (3)
  1. TRACLEER [Suspect]
     Indication: PULMONARY ARTERIAL HYPERTENSION
     Dosage: UNK
     Route: 048
     Dates: start: 20021108
  2. FLOLAN [Concomitant]
  3. COUMADIN [Concomitant]

REACTIONS (6)
  - COLON CANCER [None]
  - FATIGUE [None]
  - COLON NEOPLASM [None]
  - CHEMOTHERAPY [None]
  - COLON OPERATION [None]
  - ABDOMINAL NEOPLASM [None]
